FAERS Safety Report 20219938 (Version 1)
Quarter: 2021Q4

REPORT INFORMATION
  Report Type: Other
  Country: GB (occurrence: None)
  Receive Date: 20211222
  Receipt Date: 20211222
  Transmission Date: 20220303
  Serious: Yes (Other)
  Sender: FDA-Public Use
  Company Number: GB-ROCHE-2979146

PATIENT
  Age: 51 Year
  Sex: Female

DRUGS (1)
  1. OCREVUS [Suspect]
     Active Substance: OCRELIZUMAB
     Indication: Relapsing-remitting multiple sclerosis
     Route: 041
     Dates: start: 20211126

REACTIONS (4)
  - Headache [Recovered/Resolved]
  - Contusion [Unknown]
  - Fall [Unknown]
  - Biliary colic [Unknown]

NARRATIVE: CASE EVENT DATE: 20211126
